FAERS Safety Report 18839414 (Version 1)
Quarter: 2021Q1

REPORT INFORMATION
  Report Type: Spontaneous
  Country: DK (occurrence: DK)
  Receive Date: 20210203
  Receipt Date: 20210203
  Transmission Date: 20210419
  Serious: Yes (Hospitalization, Disabling)
  Sender: FDA-Public Use
  Company Number: DK-NOVOPROD-782930

PATIENT
  Age: 78 Year
  Sex: Male
  Weight: 81 kg

DRUGS (9)
  1. KININ [QUININE HYDROCHLORIDE] [Concomitant]
     Indication: PAIN IN EXTREMITY
     Dosage: UNK
     Route: 065
     Dates: start: 20160703, end: 20200405
  2. XARELTO [Concomitant]
     Active Substance: RIVAROXABAN
     Indication: EMBOLISM
     Dosage: UNK
     Route: 065
     Dates: start: 20191104
  3. OZEMPIC [Suspect]
     Active Substance: SEMAGLUTIDE
     Dosage: 0.5 MG, QW
     Route: 058
     Dates: end: 20201105
  4. ZARATOR [ATORVASTATIN CALCIUM] [Concomitant]
     Indication: HYPERCHOLESTEROLAEMIA
     Dosage: UNK
     Route: 065
     Dates: start: 20191104
  5. ALFUZOSIN SANDOZ [Concomitant]
     Active Substance: ALFUZOSIN
     Indication: LOWER URINARY TRACT SYMPTOMS
     Dosage: UNK
     Route: 065
     Dates: start: 20191104
  6. OZEMPIC [Suspect]
     Active Substance: SEMAGLUTIDE
     Indication: TYPE 2 DIABETES MELLITUS
     Dosage: UNK
     Route: 058
     Dates: start: 20190604, end: 20191111
  7. METFORMIN ACTAVIS [Concomitant]
     Active Substance: METFORMIN HYDROCHLORIDE
     Indication: TYPE 2 DIABETES MELLITUS
     Dosage: UNK
     Route: 065
     Dates: start: 20191104
  8. ENALAPRIL SANDOZ [Concomitant]
     Active Substance: ENALAPRIL
     Indication: HYPERTENSION
     Dosage: UNK
     Route: 065
     Dates: start: 20191104
  9. OZEMPIC [Suspect]
     Active Substance: SEMAGLUTIDE
     Dosage: 0.25 MG, QW
     Route: 058
     Dates: start: 202006

REACTIONS (9)
  - Feeling abnormal [Recovering/Resolving]
  - Confusional state [Not Recovered/Not Resolved]
  - Aphasia [Recovering/Resolving]
  - Hypoglycaemia [Recovering/Resolving]
  - Disturbance in attention [Not Recovered/Not Resolved]
  - Restlessness [Not Recovered/Not Resolved]
  - Cognitive disorder [Recovering/Resolving]
  - Delirium [Recovering/Resolving]
  - Partial seizures [Recovering/Resolving]

NARRATIVE: CASE EVENT DATE: 202010
